FAERS Safety Report 4490399-2 (Version None)
Quarter: 2004Q3

REPORT INFORMATION
  Report Type: 
  Country: None (occurrence: None)
  Receive Date: 20040921
  Receipt Date: 20031124
  Transmission Date: 20050211
  Serious: Yes (Death, Hospitalization)
  Sender: FDA-Public Use
  Company Number: 163-20785-03110518

PATIENT
  Age: 67 Year
  Sex: Male

DRUGS (11)
  1. THALOMID [Suspect]
     Indication: INTERSTITIAL LUNG DISEASE
     Dosage: 100 MG, AT BEDTIME, ORAL
     Route: 048
     Dates: start: 20031106, end: 20031118
  2. CYTOXAN [Concomitant]
  3. OXYGEN (OXYGEN) [Concomitant]
  4. ATROVENT [Concomitant]
  5. ALBUTEROL [Concomitant]
  6. AVELOX [Concomitant]
  7. PREDNISONE [Concomitant]
  8. MEVACOR [Concomitant]
  9. LASIX [Concomitant]
  10. ZYRTEC [Concomitant]
  11. COUMADIN [Concomitant]

REACTIONS (28)
  - ACUTE PULMONARY OEDEMA [None]
  - AORTIC ANEURYSM [None]
  - BLOOD CREATINE PHOSPHOKINASE INCREASED [None]
  - BLOOD GASES ABNORMAL [None]
  - BLOOD GLUCOSE INCREASED [None]
  - BLOOD UREA INCREASED [None]
  - BRAIN NATRIURETIC PEPTIDE INCREASED [None]
  - BUNDLE BRANCH BLOCK RIGHT [None]
  - CARDIAC FAILURE CONGESTIVE [None]
  - CLUBBING [None]
  - COMA [None]
  - CYANOSIS [None]
  - DEATH [None]
  - DYSPNOEA [None]
  - GASTROINTESTINAL HAEMORRHAGE [None]
  - HAEMATOCRIT DECREASED [None]
  - HAEMOGLOBIN DECREASED [None]
  - HERNIA [None]
  - HYPOTENSION [None]
  - INTERNATIONAL NORMALISED RATIO INCREASED [None]
  - LIVEDO RETICULARIS [None]
  - MYOCARDIAL INFARCTION [None]
  - NAUSEA [None]
  - OEDEMA PERIPHERAL [None]
  - PNEUMONIA [None]
  - PROTHROMBIN TIME PROLONGED [None]
  - RESPIRATORY FAILURE [None]
  - SINUS TACHYCARDIA [None]
